FAERS Safety Report 5821102-9 (Version None)
Quarter: 2008Q3

REPORT INFORMATION
  Report Type: 
  Country: None (occurrence: None)
  Receive Date: 20080724
  Receipt Date: 20080717
  Transmission Date: 20090109
  Serious: Yes (Other)
  Sender: FDA-Public Use
  Company Number: JP-WATSON-2008-04356

PATIENT
  Age: 71 Year
  Sex: Female

DRUGS (2)
  1. FIORINAL [Suspect]
     Indication: ANTIPLATELET THERAPY
     Dosage: 100 MG, DAILY
     Route: 065
  2. TICLOPIDINE HCL [Suspect]
     Indication: ANTIPLATELET THERAPY
     Dosage: 200 MG, DAILY
     Route: 065

REACTIONS (2)
  - OPERATIVE HAEMORRHAGE [None]
  - POST PROCEDURAL HAEMORRHAGE [None]
